FAERS Safety Report 19748598 (Version 8)
Quarter: 2022Q2

REPORT INFORMATION
  Report Type: Report from Study
  Country: US (occurrence: US)
  Receive Date: 20210826
  Receipt Date: 20220608
  Transmission Date: 20220721
  Serious: No
  Sender: FDA-Public Use
  Company Number: US-NOVARTISTESTPH-NVSC2021US189322

PATIENT
  Age: 54 Year
  Sex: Female

DRUGS (2)
  1. COSENTYX [Suspect]
     Active Substance: SECUKINUMAB
     Indication: Psoriasis
     Dosage: 300 MG  (EVERY WEEK FOR FIVE WEEKS)
     Route: 058
     Dates: start: 20210720
  2. COSENTYX [Suspect]
     Active Substance: SECUKINUMAB
     Dosage: 300 MG, QMO (THEN EVERY FOUR WEEK)
     Route: 058

REACTIONS (8)
  - Injection site inflammation [Unknown]
  - Dry mouth [Unknown]
  - Headache [Unknown]
  - Psoriasis [Recovered/Resolved]
  - Injection site erythema [Unknown]
  - Injection site swelling [Unknown]
  - Stress [Unknown]
  - Nasal dryness [Unknown]

NARRATIVE: CASE EVENT DATE: 20210722
